FAERS Safety Report 13100988 (Version 1)
Quarter: 2017Q1

REPORT INFORMATION
  Report Type: Report from Study
  Country: ES (occurrence: ES)
  Receive Date: 20170110
  Receipt Date: 20170110
  Transmission Date: 20170428
  Serious: Yes (Hospitalization)
  Sender: FDA-Public Use
  Company Number: ES-INGENUS PHARMACEUTICALS NJ, LLC-ING201701-000001

PATIENT
  Age: 2 Year
  Sex: Male

DRUGS (3)
  1. CEFIXIME. [Suspect]
     Active Substance: CEFIXIME
     Indication: PNEUMONIA
  2. CARISOPRODOL, ASPIRIN AND CODEINE PHOSPHATE [Suspect]
     Active Substance: ASPIRIN\CARISOPRODOL\CODEINE PHOSPHATE
  3. CLOPERASTINE [Suspect]
     Active Substance: CLOPERASTINE

REACTIONS (1)
  - Agranulocytosis [Recovered/Resolved]
